FAERS Safety Report 17388037 (Version 2)
Quarter: 2020Q1

REPORT INFORMATION
  Report Type: Report from Study
  Country: CA (occurrence: CA)
  Receive Date: 20200206
  Receipt Date: 20200221
  Transmission Date: 20200409
  Serious: Yes (Hospitalization, Other)
  Sender: FDA-Public Use
  Company Number: CA-009507513-1905CAN001149

PATIENT
  Age: 44 Year
  Sex: Female

DRUGS (14)
  1. ADVAIR HFA [Suspect]
     Active Substance: FLUTICASONE PROPIONATE\SALMETEROL XINAFOATE
     Indication: ASTHMA
     Dosage: 2 DOSAGE FORM, QD
     Route: 065
  2. ALBUTEROL SULFATE. [Suspect]
     Active Substance: ALBUTEROL SULFATE
     Indication: ASTHMA
     Dosage: DOSAGE FORM: NOT SPECIFIED
     Route: 065
  3. ALBUTEROL SULFATE. [Suspect]
     Active Substance: ALBUTEROL SULFATE
     Indication: PRODUCT USED FOR UNKNOWN INDICATION
  4. ALBUTEROL SULFATE. [Suspect]
     Active Substance: ALBUTEROL SULFATE
     Indication: ASTHMA
     Dosage: 100 MICROGRAM, 1 EVERY 1 DAY
     Route: 065
  5. SINGULAIR [Suspect]
     Active Substance: MONTELUKAST SODIUM
     Dosage: 10 MILLIGRAM, 1 EVERY 1 DAYS
     Route: 048
  6. OMALIZUMAB. [Suspect]
     Active Substance: OMALIZUMAB
     Indication: PRODUCT USED FOR UNKNOWN INDICATION
     Dosage: 2 DOSAGE FORM, 1 EVERY 1 DAYS
     Route: 042
  7. ATROVENT [Suspect]
     Active Substance: IPRATROPIUM BROMIDE
     Indication: PRODUCT USED FOR UNKNOWN INDICATION
     Dosage: 20 MILLIGRAM, 1 EVERY 1 DAYS
     Route: 065
  8. PREDNISONE. [Suspect]
     Active Substance: PREDNISONE
     Indication: PRODUCT USED FOR UNKNOWN INDICATION
     Route: 065
  9. XOLAIR [Suspect]
     Active Substance: OMALIZUMAB
     Indication: PRODUCT USED FOR UNKNOWN INDICATION
     Dosage: 2 DOSAGE FORM, FREQUENCY NOT REPORTED; DOSAGE FORM: NOT SPECIFIED
     Route: 042
  10. ADVAIR HFA [Suspect]
     Active Substance: FLUTICASONE PROPIONATE\SALMETEROL XINAFOATE
     Dosage: 2 DOSAGE FORM, 2 EVERY 1 DAYS
     Route: 065
  11. PREDNISONE. [Suspect]
     Active Substance: PREDNISONE
     Route: 065
  12. SYMBICORT [Suspect]
     Active Substance: BUDESONIDE\FORMOTEROL FUMARATE DIHYDRATE
     Dosage: 2 DOSAGE FORM, 2 EVERY 1 DAYS
     Route: 065
  13. ALBUTEROL SULFATE. [Suspect]
     Active Substance: ALBUTEROL SULFATE
     Indication: PRODUCT USED FOR UNKNOWN INDICATION
  14. SYMBICORT [Suspect]
     Active Substance: BUDESONIDE\FORMOTEROL FUMARATE DIHYDRATE
     Indication: PRODUCT USED FOR UNKNOWN INDICATION
     Dosage: 2 DOSAGE FORM, QD
     Route: 065

REACTIONS (6)
  - Asthma [Unknown]
  - Eosinophil count increased [Unknown]
  - Pulmonary thrombosis [Unknown]
  - Therapeutic response decreased [Unknown]
  - Blood count abnormal [Unknown]
  - Thrombosis [Unknown]
